FAERS Safety Report 11685235 (Version 1)
Quarter: 2015Q4

REPORT INFORMATION
  Report Type: Spontaneous
  Country: US (occurrence: None)
  Receive Date: 20151029
  Receipt Date: 20151029
  Transmission Date: 20160304
  Serious: Yes (Hospitalization)
  Sender: FDA-Public Use
  Company Number: None

PATIENT
  Age: 44 Year
  Sex: Female

DRUGS (1)
  1. TECIFIDERA [Suspect]
     Active Substance: DIMETHYL FUMARATE
     Indication: MULTIPLE SCLEROSIS
     Route: 048
     Dates: start: 20150724

REACTIONS (5)
  - No therapeutic response [None]
  - Conversion disorder [None]
  - Skin haemorrhage [None]
  - Screaming [None]
  - Rash [None]

NARRATIVE: CASE EVENT DATE: 20151027
